FAERS Safety Report 4839257-1 (Version None)
Quarter: 2005Q4

REPORT INFORMATION
  Report Type: 
  Country: None (occurrence: None)
  Receive Date: 20051129
  Receipt Date: 20041020
  Transmission Date: 20060501
  Serious: No
  Sender: FDA-Public Use
  Company Number: US-GLAXOSMITHKLINE-A0530671A

PATIENT
  Sex: Male

DRUGS (7)
  1. WELLBUTRIN SR [Suspect]
     Indication: DRUG USE FOR UNKNOWN INDICATION
     Dosage: 100MG IN THE MORNING
     Route: 048
  2. XANAX [Concomitant]
  3. KLONOPIN [Concomitant]
  4. DALMANE [Concomitant]
     Dosage: 60MG AT NIGHT
  5. REMERON [Concomitant]
     Dosage: 30MG AT NIGHT
  6. BENADRYL [Concomitant]
     Dosage: 150MG AT NIGHT
  7. AMBIEN [Concomitant]
     Dosage: 20MG AT NIGHT

REACTIONS (1)
  - PSYCHOMOTOR HYPERACTIVITY [None]
